FAERS Safety Report 4807516-4 (Version None)
Quarter: 2005Q4

REPORT INFORMATION
  Report Type: 
  Country: None (occurrence: None)
  Receive Date: 20051020
  Receipt Date: 20051006
  Transmission Date: 20060501
  Serious: No
  Sender: FDA-Public Use
  Company Number: WAES 0510USA04832

PATIENT
  Age: 36 Year
  Sex: Female

DRUGS (1)
  1. TOP TRESADERM [Suspect]
     Indication: DRUG ADMINISTRATION ERROR
     Dosage: UNK/UNK/OPHT
     Route: 047
     Dates: start: 20051005, end: 20051005

REACTIONS (3)
  - ACCIDENTAL EXPOSURE [None]
  - HEADACHE [None]
  - VISION BLURRED [None]
